FAERS Safety Report 23258502 (Version 2)
Quarter: 2023Q4

REPORT INFORMATION
  Report Type: Report from Study
  Country: IT (occurrence: IT)
  Receive Date: 20231204
  Receipt Date: 20231219
  Transmission Date: 20240109
  Serious: Yes (Hospitalization)
  Sender: FDA-Public Use
  Company Number: IT-ABBVIE-5519603

PATIENT
  Age: 64 Year
  Sex: Male

DRUGS (2)
  1. CARBIDOPA\LEVODOPA [Suspect]
     Active Substance: CARBIDOPA\LEVODOPA
     Indication: Parkinson^s disease
     Dosage: DAILY DOSE (MG): 1140; PUMP SETTING: MD: 9+3; CR: 3 (14H); ED: 3
     Route: 050
     Dates: start: 20160712
  2. CARBIDOPA\LEVODOPA [Suspect]
     Active Substance: CARBIDOPA\LEVODOPA

REACTIONS (1)
  - Embedded device [Recovered/Resolved]

NARRATIVE: CASE EVENT DATE: 20231001
